FAERS Safety Report 25486483 (Version 1)
Quarter: 2025Q2

REPORT INFORMATION
  Report Type: Spontaneous
  Country: FR (occurrence: FR)
  Receive Date: 20250627
  Receipt Date: 20250627
  Transmission Date: 20250717
  Serious: Yes (Other)
  Sender: NOVO NORDISK
  Company Number: FR-NOVOPROD-1434489

PATIENT
  Age: 57 Year
  Sex: Female
  Weight: 73 kg

DRUGS (6)
  1. OZEMPIC [Suspect]
     Active Substance: SEMAGLUTIDE
     Indication: Obesity
     Dates: end: 20250410
  2. OZEMPIC [Suspect]
     Active Substance: SEMAGLUTIDE
     Indication: Sleep apnoea syndrome
  3. OZEMPIC [Suspect]
     Active Substance: SEMAGLUTIDE
     Indication: Sleep apnoea syndrome
  4. OZEMPIC [Suspect]
     Active Substance: SEMAGLUTIDE
     Indication: Obesity
     Dates: start: 20241115
  5. OZEMPIC [Suspect]
     Active Substance: SEMAGLUTIDE
     Indication: Sleep apnoea syndrome
  6. OZEMPIC [Suspect]
     Active Substance: SEMAGLUTIDE
     Indication: Obesity

REACTIONS (3)
  - Drug eruption [Not Recovered/Not Resolved]
  - Lichen planus [Not Recovered/Not Resolved]
  - Product use in unapproved indication [Recovered/Resolved]

NARRATIVE: CASE EVENT DATE: 20241115
